FAERS Safety Report 4700796-5 (Version None)
Quarter: 2005Q2

REPORT INFORMATION
  Report Type: 
  Country: None (occurrence: None)
  Receive Date: 20050624
  Receipt Date: 20050117
  Transmission Date: 20051028
  Serious: Yes (Death)
  Sender: FDA-Public Use
  Company Number: 392720

PATIENT
  Age: 51 Year
  Sex: Male

DRUGS (1)
  1. XELODA [Suspect]
     Indication: GASTROOESOPHAGEAL CANCER
     Dosage: ORAL
     Route: 048

REACTIONS (3)
  - DEATH [None]
  - GASTROOESOPHAGEAL CANCER [None]
  - NEOPLASM MALIGNANT [None]
